FAERS Safety Report 10304331 (Version 1)
Quarter: 2014Q3

REPORT INFORMATION
  Report Type: Spontaneous
  Country: US (occurrence: US)
  Receive Date: 20140715
  Receipt Date: 20140715
  Transmission Date: 20150326
  Serious: Yes (Death)
  Sender: FDA-Public Use
  Company Number: US-AMGEN-USASP2014052123

PATIENT
  Sex: Female

DRUGS (9)
  1. ISOSORB MONO [Concomitant]
     Dosage: 10 MG, UNK
  2. VERAPAMIL [Concomitant]
     Active Substance: VERAPAMIL HYDROCHLORIDE
     Dosage: 120 MG, UNK
  3. CELEBREX [Concomitant]
     Active Substance: CELECOXIB
     Dosage: 50 MG, UNK
  4. HYDROCHLOROTH [Concomitant]
     Active Substance: HYDROCHLOROTHIAZIDE
     Dosage: 12.5 MG, UNK
  5. DEXILANT [Concomitant]
     Active Substance: DEXLANSOPRAZOLE
     Dosage: 30 MG, DR
  6. ENBREL [Suspect]
     Active Substance: ETANERCEPT
     Indication: PRODUCT USED FOR UNKNOWN INDICATION
     Dosage: 50 MG, QWK
     Route: 058
  7. AMITRIPTYLIN [Concomitant]
     Active Substance: AMITRIPTYLINE
     Dosage: 10 MG, UNK
  8. MISOPROSTOL. [Concomitant]
     Active Substance: MISOPROSTOL
     Dosage: 100 MUG, UNK
  9. MORPHINE SULF [Concomitant]
     Dosage: 10 MG, UNK

REACTIONS (1)
  - Death [Fatal]
